FAERS Safety Report 19423757 (Version 3)
Quarter: 2022Q2

REPORT INFORMATION
  Report Type: Spontaneous
  Country: US (occurrence: US)
  Receive Date: 20210616
  Receipt Date: 20220523
  Transmission Date: 20220721
  Serious: No
  Sender: FDA-Public Use
  Company Number: US-PFIZER INC-2019150182

PATIENT
  Age: 90 Year
  Sex: Female

DRUGS (1)
  1. PREMARIN [Suspect]
     Active Substance: ESTROGENS, CONJUGATED
     Dosage: 1 DF, DAILY (5 DAYS/ WEEK)/ (ONE DAILY X5D/ WK)
     Route: 048

REACTIONS (3)
  - Malaise [Unknown]
  - Product prescribing error [Unknown]
  - Product dispensing issue [Unknown]
